FAERS Safety Report 11184093 (Version 1)
Quarter: 2015Q2

REPORT INFORMATION
  Report Type: Spontaneous
  Country: FR (occurrence: None)
  Receive Date: 20150610
  Receipt Date: 20150610
  Transmission Date: 20150821
  Serious: Yes (Other)
  Sender: FDA-Public Use
  Company Number: FK201502623

PATIENT
  Age: 50 Year
  Sex: Male

DRUGS (3)
  1. FOLIC ACID (FOLIC ACID) [Concomitant]
     Active Substance: FOLIC ACID
  2. FLUOROURACIL (FLUOROURACIL) [Concomitant]
     Active Substance: FLUOROURACIL
  3. OXALIPLATIN. [Suspect]
     Active Substance: OXALIPLATIN
     Indication: COLORECTAL CANCER METASTATIC
     Dosage: 12 COURSES

REACTIONS (2)
  - Nodular regenerative hyperplasia [None]
  - Hepatocellular carcinoma [None]
